FAERS Safety Report 5059905-3 (Version None)
Quarter: 2006Q3

REPORT INFORMATION
  Report Type: 
  Country: None (occurrence: None)
  Receive Date: 20060718
  Receipt Date: 20060629
  Transmission Date: 20061208
  Serious: Yes (Other)
  Sender: FDA-Public Use
  Company Number: US200607000862

PATIENT
  Age: 53 Year
  Sex: Male

DRUGS (6)
  1. HUMALOG [Suspect]
     Indication: DIABETES MELLITUS
     Dates: start: 20000101
  2. INSULIN, ANIMAL (INSULIN, ANIMAL UNKNOWN MANUFACTURER) [Suspect]
     Indication: DIABETES MELLITUS
     Dates: start: 19640101
  3. HUMULIN R [Suspect]
     Indication: DIABETES MELLITUS
     Dates: start: 20000101
  4. HUMULIN N [Suspect]
     Indication: DIABETES MELLITUS
     Dates: start: 20000101
  5. LANTUS [Concomitant]
  6. DILANTIN [Concomitant]

REACTIONS (6)
  - BLOOD GLUCOSE DECREASED [None]
  - BLOOD GLUCOSE INCREASED [None]
  - DEAFNESS [None]
  - DRUG INEFFECTIVE [None]
  - EPILEPSY [None]
  - VISUAL ACUITY REDUCED [None]
